FAERS Safety Report 7855584-8 (Version None)
Quarter: 2011Q4

REPORT INFORMATION
  Report Type: 
  Country: None (occurrence: None)
  Receive Date: 20111026
  Receipt Date: 20111004
  Transmission Date: 20120403
  Serious: Yes (Hospitalization)
  Sender: FDA-Public Use
  Company Number: ZA-BMSGILMSD-2011-0045199

PATIENT

DRUGS (2)
  1. DIURETIC [Concomitant]
  2. ATRIPLA [Suspect]
     Indication: HIV INFECTION
     Dosage: UNK

REACTIONS (3)
  - MALAISE [None]
  - ASCITES [None]
  - DIARRHOEA [None]
